FAERS Safety Report 15410550 (Version 1)
Quarter: 2018Q3

REPORT INFORMATION
  Report Type: Report from Study
  Country: KR (occurrence: KR)
  Receive Date: 20180921
  Receipt Date: 20180921
  Transmission Date: 20181010
  Serious: Yes (Hospitalization)
  Sender: FDA-Public Use
  Company Number: KR-CELLTRION INC.-2018KR017326

PATIENT

DRUGS (12)
  1. REMSIMA [Suspect]
     Active Substance: INFLIXIMAB
     Dosage: 360 MG
     Route: 042
     Dates: start: 20170419, end: 20170419
  2. REMSIMA [Suspect]
     Active Substance: INFLIXIMAB
     Dosage: 400 MG
     Route: 042
     Dates: start: 20171220, end: 20171220
  3. SOLONDO [Concomitant]
     Active Substance: PREDNISOLONE
     Indication: COLITIS ULCERATIVE
     Dosage: 5 MG
     Route: 048
     Dates: start: 20170927, end: 20180110
  4. REMSIMA [Suspect]
     Active Substance: INFLIXIMAB
     Dosage: 350 MG
     Route: 042
     Dates: start: 20170222, end: 20170222
  5. REMSIMA [Suspect]
     Active Substance: INFLIXIMAB
     Dosage: 360 MG
     Route: 042
     Dates: start: 20170828, end: 20170828
  6. REMSIMA [Suspect]
     Active Substance: INFLIXIMAB
     Dosage: 400 MG
     Route: 042
     Dates: start: 20171025, end: 20171025
  7. AZAPRINE [Concomitant]
     Active Substance: AZATHIOPRINE
     Indication: COLITIS ULCERATIVE
     Dosage: 25 MG
     Route: 048
     Dates: start: 20171220, end: 20180110
  8. MEZAVANT [Concomitant]
     Active Substance: MESALAMINE
     Indication: COLITIS ULCERATIVE
     Dosage: 2.4 MG
     Route: 048
     Dates: start: 20171108
  9. REMSIMA [Suspect]
     Active Substance: INFLIXIMAB
     Dosage: 350 MG
     Route: 042
     Dates: start: 20161128, end: 20161128
  10. MUTAFLOR [Concomitant]
     Active Substance: ESCHERICHIA COLI
     Indication: COLITIS ULCERATIVE
     Dosage: 1 DF
     Route: 048
     Dates: start: 20160929
  11. REMSIMA [Suspect]
     Active Substance: INFLIXIMAB
     Indication: COLITIS ULCERATIVE
     Dosage: 350 MG
     Route: 042
     Dates: start: 20161109, end: 20161109
  12. REMSIMA [Suspect]
     Active Substance: INFLIXIMAB
     Dosage: 360 MG
     Route: 042
     Dates: start: 20170621, end: 20170621

REACTIONS (3)
  - Inappropriate schedule of drug administration [Unknown]
  - Bronchiectasis [Recovering/Resolving]
  - Pneumonia [Recovering/Resolving]

NARRATIVE: CASE EVENT DATE: 20180105
